FAERS Safety Report 6025122-3 (Version None)
Quarter: 2008Q4

REPORT INFORMATION
  Report Type: 
  Country: None (occurrence: None)
  Receive Date: 20081231
  Receipt Date: 20081222
  Transmission Date: 20090506
  Serious: Yes (Other)
  Sender: FDA-Public Use
  Company Number: JP-AMGEN-US322320

PATIENT
  Sex: Female

DRUGS (6)
  1. ENBREL [Suspect]
     Indication: RHEUMATOID ARTHRITIS
     Dosage: UNSPECIFIED
     Route: 058
  2. PYDOXAL [Concomitant]
  3. GASTER [Concomitant]
  4. ISONIAZID [Concomitant]
  5. PREDNISOLONE [Concomitant]
  6. BREDININ [Concomitant]

REACTIONS (1)
  - POROCARCINOMA [None]
